FAERS Safety Report 14156072 (Version 1)
Quarter: 2017Q4

REPORT INFORMATION
  Report Type: Spontaneous
  Country: IT (occurrence: IT)
  Receive Date: 20171103
  Receipt Date: 20171103
  Transmission Date: 20180321
  Serious: Yes (Death)
  Sender: FDA-Public Use
  Company Number: IT-TEVA-821027ACC

PATIENT
  Age: 64 Year
  Sex: Male

DRUGS (2)
  1. URSODEOXYCHOLIC ACID [Suspect]
     Active Substance: URSODIOL
     Indication: VANISHING BILE DUCT SYNDROME
     Route: 048
  2. PREDNISONE. [Suspect]
     Active Substance: PREDNISONE
     Indication: VANISHING BILE DUCT SYNDROME
     Route: 048

REACTIONS (4)
  - Drug ineffective [Fatal]
  - Vanishing bile duct syndrome [Fatal]
  - Acute hepatic failure [Fatal]
  - Condition aggravated [Fatal]
